FAERS Safety Report 10420177 (Version 1)
Quarter: 2014Q3

REPORT INFORMATION
  Report Type: Spontaneous
  Country: US (occurrence: None)
  Receive Date: 20140701
  Receipt Date: 20140701
  Transmission Date: 20150326
  Serious: No
  Sender: FDA-Public Use
  Company Number: 1000067483

PATIENT
  Age: 60 Year
  Sex: Female
  Weight: 58 kg

DRUGS (9)
  1. LINZESS [Suspect]
     Active Substance: LINACLOTIDE
     Indication: CONSTIPATION
     Dosage: 145 MCG (145 MCG, 1 IN 1 D), ORAL
     Route: 048
     Dates: start: 201403, end: 201403
  2. LYRICA [Concomitant]
     Active Substance: PREGABALIN
  3. CLONAZEPAM (CLONAZEPAM) (CLONAZEPAM) [Concomitant]
     Active Substance: CLONAZEPAM
  4. CYMBALTA (DULOXETINE HYDROCHLORIDE) (DULOXETINE HYDROCHLORIDE) [Concomitant]
  5. FLEXERIL (CYCLOBENZAPRINE) (CYCLOBENZAPRINE) [Concomitant]
  6. CITRACAL (CALCIUM CITRATE) (CALCIUM CITRATE) [Concomitant]
  7. TYLENOL WITH CODEINE (ACETAMINOPHEN, CODEINE) (ACETAMINOPHEN, CODEINE) [Concomitant]
  8. TRAZODONE [Concomitant]
     Active Substance: TRAZODONE HYDROCHLORIDE
  9. MVI (VITAMINS NOS) (VITAMINS NOS) [Concomitant]

REACTIONS (1)
  - Drug ineffective [None]

NARRATIVE: CASE EVENT DATE: 201403
